FAERS Safety Report 24890411 (Version 2)
Quarter: 2025Q1

REPORT INFORMATION
  Report Type: Report from Study
  Country: RO (occurrence: RO)
  Receive Date: 20250127
  Receipt Date: 20250318
  Transmission Date: 20250409
  Serious: Yes (Other)
  Sender: ROCHE
  Company Number: RO-ROCHE-10000186660

PATIENT
  Age: 48 Year
  Sex: Female
  Weight: 92 kg

DRUGS (3)
  1. PHESGO [Suspect]
     Active Substance: HYALURONIDASE-ZZXF\PERTUZUMAB\TRASTUZUMAB
     Indication: Metastases to bone
     Route: 058
     Dates: start: 202202
  2. DOCETAXEL [Concomitant]
     Active Substance: DOCETAXEL
  3. LETROZOLE [Concomitant]
     Active Substance: LETROZOLE

REACTIONS (4)
  - Memory impairment [Unknown]
  - Metastasis [Unknown]
  - Neuropathy peripheral [Unknown]
  - Weight decreased [Unknown]
